FAERS Safety Report 5151609-1 (Version None)
Quarter: 2006Q4

REPORT INFORMATION
  Report Type: 
  Country: None (occurrence: None)
  Receive Date: 20061115
  Receipt Date: 20060323
  Transmission Date: 20070319
  Serious: No
  Sender: FDA-Public Use
  Company Number: US-BRISTOL-MYERS SQUIBB COMPANY-13325634

PATIENT
  Sex: Male

DRUGS (3)
  1. SUSTIVA [Suspect]
     Indication: HIV INFECTION
     Dates: start: 19980101
  2. AZT [Concomitant]
  3. LAMIVUDINE [Concomitant]

REACTIONS (1)
  - HALLUCINATION, AUDITORY [None]
